FAERS Safety Report 18383293 (Version 2)
Quarter: 2020Q4

REPORT INFORMATION
  Report Type: Spontaneous
  Country: US (occurrence: US)
  Receive Date: 20201014
  Receipt Date: 20201028
  Transmission Date: 20210114
  Serious: No
  Sender: FDA-Public Use
  Company Number: US-BAYER-2020-214349

PATIENT
  Sex: Female

DRUGS (1)
  1. CLIMARA [Suspect]
     Active Substance: ESTRADIOL
     Dosage: UNK
     Route: 062
     Dates: start: 202005, end: 2020

REACTIONS (3)
  - Application site urticaria [None]
  - Application site rash [None]
  - Inappropriate schedule of product administration [None]

NARRATIVE: CASE EVENT DATE: 202005
